FAERS Safety Report 7367721-2 (Version None)
Quarter: 2011Q1

REPORT INFORMATION
  Report Type: 
  Country: None (occurrence: None)
  Receive Date: 20110311
  Receipt Date: 20100225
  Transmission Date: 20110831
  Serious: Yes (Hospitalization)
  Sender: FDA-Public Use
  Company Number: 2011MA001850

PATIENT
  Age: 32 Year
  Sex: Female

DRUGS (3)
  1. ISONIAZID [Concomitant]
  2. CIPROFLOXACIN [Concomitant]
  3. RIFAMPIN [Suspect]
     Indication: TUBERCULOSIS
     Dosage: ;PO
     Route: 048

REACTIONS (9)
  - LIVER INJURY [None]
  - MUSCLE ATROPHY [None]
  - ASCITES [None]
  - PARAPARESIS [None]
  - HEPATOSPLENOMEGALY [None]
  - LYMPHADENOPATHY [None]
  - HEPATOTOXICITY [None]
  - HYPERAESTHESIA [None]
  - CLONUS [None]
